FAERS Safety Report 20830316 (Version 2)
Quarter: 2022Q4

REPORT INFORMATION
  Report Type: Report from Study
  Country: CO (occurrence: CO)
  Receive Date: 20220514
  Receipt Date: 20221115
  Transmission Date: 20230113
  Serious: Yes (Hospitalization, Other)
  Sender: FDA-Public Use
  Company Number: CO-BRISTOL-MYERS SQUIBB COMPANY-2022-037104

PATIENT
  Age: 70 Year
  Sex: Female

DRUGS (1)
  1. ELIQUIS [Suspect]
     Active Substance: APIXABAN
     Indication: Product used for unknown indication
     Route: 048
     Dates: start: 2018

REACTIONS (5)
  - Ischaemia [Unknown]
  - Left ventricular dilatation [Unknown]
  - Malaise [Unknown]
  - Aphasia [Recovering/Resolving]
  - Monoparesis [Unknown]

NARRATIVE: CASE EVENT DATE: 20220106
